FAERS Safety Report 9156666 (Version 1)
Quarter: 2013Q1

REPORT INFORMATION
  Report Type: Spontaneous
  Country: JP (occurrence: None)
  Receive Date: 20130206
  Receipt Date: 20130206
  Transmission Date: 20140127
  Serious: Yes (Life-Threatening, Hospitalization)
  Sender: FDA-Public Use
  Company Number: VAL_01305_2013

PATIENT
  Age: 62 Year
  Sex: Female

DRUGS (1)
  1. CARBAMAZEPINE (CARBAMAZEPINE) CHEWABLE TABLET [Suspect]
     Indication: TRIGEMINAL NEURALGIA

REACTIONS (8)
  - Human herpesvirus 6 infection [None]
  - Cytomegalovirus infection [None]
  - Thyroiditis [None]
  - Drug reaction with eosinophilia and systemic symptoms [None]
  - Weight increased [None]
  - Lymphadenopathy [None]
  - Hepatic function abnormal [None]
  - Lymphocyte stimulation test positive [None]
